FAERS Safety Report 15888217 (Version 3)
Quarter: 2019Q1

REPORT INFORMATION
  Report Type: Spontaneous
  Country: CN (occurrence: CN)
  Receive Date: 20190130
  Receipt Date: 20190130
  Transmission Date: 20190417
  Serious: Yes (Hospitalization)
  Sender: FDA-Public Use
  Company Number: PHHY2019CN016304

PATIENT
  Age: 63 Year
  Sex: Male

DRUGS (4)
  1. DICLOFENAC [Suspect]
     Active Substance: DICLOFENAC
     Indication: PAIN
     Dosage: 75 MG, QD
     Route: 065
  2. SORAFENIB [Interacting]
     Active Substance: SORAFENIB
     Indication: RENAL CANCER METASTATIC
     Dosage: 0.2 G, QID
     Route: 048
     Dates: start: 201710
  3. SORAFENIB [Interacting]
     Active Substance: SORAFENIB
     Dosage: 0.4 G, BID
     Route: 048
  4. SORAFENIB [Interacting]
     Active Substance: SORAFENIB
     Dosage: 0.2 G, BID
     Route: 048

REACTIONS (11)
  - Yellow skin [Unknown]
  - Skin discolouration [Unknown]
  - Chromaturia [Unknown]
  - Coagulation test abnormal [Unknown]
  - Hepatic function abnormal [Unknown]
  - Blood bilirubin increased [Unknown]
  - Acute hepatic failure [Recovering/Resolving]
  - Jaundice hepatocellular [Unknown]
  - Transaminases increased [Recovered/Resolved]
  - Drug-induced liver injury [Unknown]
  - Drug interaction [Unknown]

NARRATIVE: CASE EVENT DATE: 20180218
